FAERS Safety Report 7949948-1 (Version None)
Quarter: 2011Q4

REPORT INFORMATION
  Report Type: 
  Country: None (occurrence: None)
  Receive Date: 20111130
  Receipt Date: 20111123
  Transmission Date: 20120403
  Serious: Yes (Hospitalization, Other)
  Sender: FDA-Public Use
  Company Number: BR-BRISTOL-MYERS SQUIBB COMPANY-16248346

PATIENT
  Age: 39 Year
  Sex: Female
  Weight: 59 kg

DRUGS (7)
  1. GLIMEPIRIDE [Concomitant]
  2. AMYTRIL [Concomitant]
     Indication: DEPRESSION
  3. GLICLAZIDE [Concomitant]
  4. ONGLYZA [Suspect]
     Indication: DIABETES MELLITUS
     Dosage: 1DF:1TAB. INITIATED 8 MONTHS AGO ON 2011
     Route: 048
     Dates: start: 20110101
  5. METFORMIN HYDROCHLORIDE [Concomitant]
  6. VITAMIN TAB [Concomitant]
     Indication: ASTHENIA
  7. OMEPRAZOLE [Concomitant]
     Indication: GASTRIC DISORDER

REACTIONS (1)
  - TUBERCULOSIS [None]
